FAERS Safety Report 15878181 (Version 2)
Quarter: 2020Q1

REPORT INFORMATION
  Report Type: Spontaneous
  Country: US (occurrence: US)
  Receive Date: 20190128
  Receipt Date: 20200226
  Transmission Date: 20200409
  Serious: No
  Sender: FDA-Public Use
  Company Number: US-PFIZER INC-2018485386

PATIENT
  Age: 51 Year
  Sex: Female

DRUGS (1)
  1. XELJANZ XR [Suspect]
     Active Substance: TOFACITINIB CITRATE
     Indication: RHEUMATOID ARTHRITIS
     Dosage: 11 MG, DAILY (TAKE 1 TABLET BY MOUTH DAILY)
     Route: 048
     Dates: start: 201804

REACTIONS (3)
  - Product dose omission [Unknown]
  - Nasopharyngitis [Recovering/Resolving]
  - Productive cough [Recovering/Resolving]
